FAERS Safety Report 5034406-7 (Version None)
Quarter: 2006Q2

REPORT INFORMATION
  Report Type: 
  Country: None (occurrence: None)
  Receive Date: 20060620
  Receipt Date: 20060531
  Transmission Date: 20061013
  Serious: Yes (Other)
  Sender: FDA-Public Use
  Company Number: DE200606002487

PATIENT
  Age: 2 Year

DRUGS (2)
  1. HUMALOG [Suspect]
     Indication: GESTATIONAL DIABETES
     Dosage: 33 IU, DAILY (1/D), TRANSPLACENTAL
     Route: 064
     Dates: start: 20011115, end: 20011228
  2. OXYTOCIN [Concomitant]

REACTIONS (6)
  - ABNORMAL BEHAVIOUR [None]
  - ATTENTION DEFICIT/HYPERACTIVITY DISORDER [None]
  - DRUG EXPOSURE DURING PREGNANCY [None]
  - MATERNAL CONDITION AFFECTING FOETUS [None]
  - MENTAL RETARDATION SEVERITY UNSPECIFIED [None]
  - SPEECH DISORDER DEVELOPMENTAL [None]
